FAERS Safety Report 15141992 (Version 4)
Quarter: 2018Q3

REPORT INFORMATION
  Report Type: Report from Study
  Country: KR (occurrence: KR)
  Receive Date: 20180713
  Receipt Date: 20180928
  Transmission Date: 20181010
  Serious: Yes (Hospitalization)
  Sender: FDA-Public Use
  Company Number: KR-SA-2018SA176826

PATIENT
  Age: 70 Year
  Sex: Male

DRUGS (9)
  1. APIDRA [Suspect]
     Active Substance: INSULIN GLULISINE
     Dosage: 14 U, TID
     Route: 058
     Dates: start: 2018, end: 2018
  2. APIDRA [Suspect]
     Active Substance: INSULIN GLULISINE
     Indication: DIABETES MELLITUS
     Dosage: 16 U, TID
     Route: 058
     Dates: start: 2018
  3. APIDRA [Suspect]
     Active Substance: INSULIN GLULISINE
     Dosage: 12 U, TID
     Route: 058
     Dates: start: 201806, end: 201807
  4. INSULIN GLARGINE [Suspect]
     Active Substance: INSULIN GLARGINE
     Dosage: 12 U, QD
     Route: 058
     Dates: start: 201805, end: 201807
  5. INSULIN GLARGINE [Suspect]
     Active Substance: INSULIN GLARGINE
     Dosage: 15 U, QD
     Route: 058
     Dates: start: 201807, end: 201807
  6. INSULIN GLARGINE [Suspect]
     Active Substance: INSULIN GLARGINE
     Indication: DIABETES MELLITUS
     Dosage: UNK UNK, QD
     Route: 058
  7. APIDRA [Suspect]
     Active Substance: INSULIN GLULISINE
     Dosage: 8 U, TID
     Route: 058
     Dates: start: 201806, end: 201806
  8. APIDRA [Suspect]
     Active Substance: INSULIN GLULISINE
     Dosage: 12?0?12 U, BID
     Route: 058
     Dates: start: 201807, end: 2018
  9. INSULIN GLARGINE [Suspect]
     Active Substance: INSULIN GLARGINE
     Indication: DIABETES MELLITUS
     Dosage: 16 U, QD
     Route: 058
     Dates: start: 201808

REACTIONS (7)
  - Abdominal pain [Recovered/Resolved]
  - Glycosylated haemoglobin increased [Not Recovered/Not Resolved]
  - Dyspepsia [Recovered/Resolved]
  - Hypoglycaemia [Recovered/Resolved]
  - Cholelithiasis [Recovered/Resolved]
  - Chills [Recovered/Resolved]
  - Hyperglycaemia [Not Recovered/Not Resolved]

NARRATIVE: CASE EVENT DATE: 201806
